FAERS Safety Report 8481221-8 (Version None)
Quarter: 2012Q2

REPORT INFORMATION
  Report Type: 
  Country: None (occurrence: None)
  Receive Date: 20120622
  Receipt Date: 20120611
  Transmission Date: 20120825
  Serious: Yes (Death)
  Sender: FDA-Public Use
  Company Number: CN-AGG-06-2012-0499

PATIENT

DRUGS (2)
  1. TIROFIBAN HCL [Suspect]
     Indication: PLATELET AGGREGATION
     Dosage: 8-10 MCG/KG FOR 3-5 MIN FOLLOWED BY 0
  2. TIROFIBAN HCL [Suspect]
     Indication: PLATELET AGGREGATION
     Dosage: 0.1-0.15 MCG/KG/MIN INTRAVENOUS (NOT
     Route: 042

REACTIONS (1)
  - BRAIN HERNIATION [None]
